FAERS Safety Report 5505323-0 (Version None)
Quarter: 2007Q4

REPORT INFORMATION
  Report Type: 
  Country: None (occurrence: None)
  Receive Date: 20071102
  Receipt Date: 20071029
  Transmission Date: 20080405
  Serious: Yes (Other)
  Sender: FDA-Public Use
  Company Number: B0493009A

PATIENT
  Age: 52 Year
  Sex: Female

DRUGS (1)
  1. FLUTIDE DISKUS [Suspect]
     Indication: DRUG USE FOR UNKNOWN INDICATION
     Dosage: 400MCG PER DAY
     Route: 055

REACTIONS (1)
  - HEPATIC ENZYME INCREASED [None]
